FAERS Safety Report 5490673-7 (Version None)
Quarter: 2007Q4

REPORT INFORMATION
  Report Type: 
  Country: None (occurrence: None)
  Receive Date: 20071019
  Receipt Date: 20071012
  Transmission Date: 20080405
  Serious: Yes (Other)
  Sender: FDA-Public Use
  Company Number: CA-ASTRAZENECA-2007UW24030

PATIENT
  Age: 48 Year
  Sex: Female

DRUGS (2)
  1. ARIMIDEX [Suspect]
     Indication: BREAST CANCER
     Route: 048
     Dates: start: 20060101, end: 20071011
  2. APO-ATENIDONE [Concomitant]
     Indication: HYPERTENSION
     Dosage: 50/25

REACTIONS (4)
  - ARTHRALGIA [None]
  - BREAST MASS [None]
  - NAUSEA [None]
  - PAROSMIA [None]
